FAERS Safety Report 8381427-2 (Version None)
Quarter: 2012Q2

REPORT INFORMATION
  Report Type: 
  Country: None (occurrence: None)
  Receive Date: 20120523
  Receipt Date: 20120514
  Transmission Date: 20120825
  Serious: Yes (Other)
  Sender: FDA-Public Use
  Company Number: JP-ROCHE-1066959

PATIENT
  Sex: Female
  Weight: 39 kg

DRUGS (12)
  1. JUVELA N [Concomitant]
     Indication: HYPERTENSION
     Route: 048
  2. LASIX [Concomitant]
     Indication: HYPERTENSION
     Route: 048
  3. CONIEL [Concomitant]
     Indication: HYPERTENSION
     Route: 048
  4. CINACALCET HYDROCHLORIDE [Concomitant]
     Indication: HYPERPARATHYROIDISM SECONDARY
     Route: 048
     Dates: start: 20100215
  5. PARNAPARIN SODIUM [Concomitant]
     Indication: ANTICOAGULANT THERAPY
     Dosage: EACH HEMODIALYSIS
     Route: 042
     Dates: start: 20110601, end: 20120423
  6. MICARDIS [Concomitant]
     Indication: HYPERTENSION
     Route: 048
  7. VITAMIN B12 [Concomitant]
     Indication: NEUROPATHY PERIPHERAL
     Route: 048
  8. OMEPRAZOLE [Concomitant]
     Indication: GASTROOESOPHAGEAL REFLUX DISEASE
     Route: 048
  9. ROCALTROL [Concomitant]
     Indication: HYPERPARATHYROIDISM SECONDARY
     Route: 048
  10. MIRCERA [Suspect]
     Route: 042
     Dates: start: 20120409, end: 20120409
  11. MIRCERA [Suspect]
     Indication: NEPHROGENIC ANAEMIA
     Route: 042
     Dates: start: 20120111, end: 20120312
  12. ALPROSTADIL [Concomitant]
     Indication: PERIPHERAL ARTERIAL OCCLUSIVE DISEASE
     Route: 048

REACTIONS (3)
  - THROMBOCYTOPENIA [None]
  - VITREOUS HAEMORRHAGE [None]
  - VISUAL ACUITY REDUCED [None]
